FAERS Safety Report 24306586 (Version 2)
Quarter: 2024Q3

REPORT INFORMATION
  Report Type: Spontaneous
  Country: IT (occurrence: IT)
  Receive Date: 20240911
  Receipt Date: 20240927
  Transmission Date: 20241016
  Serious: Yes (Life-Threatening)
  Sender: ORGANON
  Company Number: None

PATIENT
  Age: 35 Year
  Sex: Female
  Weight: 89 kg

DRUGS (1)
  1. NUVARING [Suspect]
     Active Substance: ETHINYL ESTRADIOL\ETONOGESTREL
     Indication: Menstruation irregular
     Dosage: 0.12 MG / 0.015 MG
     Route: 015
     Dates: start: 20230401, end: 20240803

REACTIONS (2)
  - Deep vein thrombosis [Recovering/Resolving]
  - Off label use [Unknown]

NARRATIVE: CASE EVENT DATE: 20230401
